FAERS Safety Report 6736466-1 (Version None)
Quarter: 2010Q2

REPORT INFORMATION
  Report Type: 
  Country: None (occurrence: None)
  Receive Date: 20100521
  Receipt Date: 20100330
  Transmission Date: 20101027
  Serious: Yes (Other)
  Sender: FDA-Public Use
  Company Number: US-BRISTOL-MYERS SQUIBB COMPANY-15002736

PATIENT
  Age: 33 Year
  Sex: Female
  Weight: 57 kg

DRUGS (7)
  1. KENALOG [Suspect]
     Indication: BACK PAIN
     Dosage: 11/2007
     Route: 008
     Dates: start: 20071001
  2. FENTANYL [Concomitant]
  3. METHADONE [Concomitant]
  4. PERCOCET [Concomitant]
  5. NEXIUM [Concomitant]
  6. LEXAPRO [Concomitant]
  7. ORTHO TRI-CYCLEN [Concomitant]

REACTIONS (6)
  - ADRENAL SUPPRESSION [None]
  - BACK PAIN [None]
  - DEPRESSION [None]
  - FATIGUE [None]
  - SUICIDAL IDEATION [None]
  - WEIGHT INCREASED [None]
